FAERS Safety Report 26173406 (Version 1)
Quarter: 2025Q4

REPORT INFORMATION
  Report Type: Spontaneous
  Country: EU (occurrence: EU)
  Receive Date: 20251218
  Receipt Date: 20251218
  Transmission Date: 20260117
  Serious: Yes (Life-Threatening, Hospitalization, Other)
  Sender: AUROBINDO
  Company Number: EU-ZENTIVA-2025-ZT-052993

PATIENT
  Age: 74 Year
  Sex: Male

DRUGS (1)
  1. RIVAROXABAN [Suspect]
     Active Substance: RIVAROXABAN
     Indication: Anticoagulant therapy
     Dosage: UNK
     Route: 065

REACTIONS (11)
  - Cerebral haematoma [Recovering/Resolving]
  - Hemiparesis [Recovering/Resolving]
  - Abnormal behaviour [Recovering/Resolving]
  - Headache [Recovering/Resolving]
  - Nausea [Recovering/Resolving]
  - Vomiting [Recovering/Resolving]
  - Psychomotor retardation [Recovering/Resolving]
  - Hemianopia [Recovering/Resolving]
  - Brain oedema [Recovering/Resolving]
  - Intraventricular haemorrhage [Recovering/Resolving]
  - Neurologic neglect syndrome [Recovering/Resolving]
